FAERS Safety Report 10172873 (Version 1)
Quarter: 2014Q2

REPORT INFORMATION
  Report Type: Spontaneous
  Country: GB (occurrence: GB)
  Receive Date: 20140515
  Receipt Date: 20140515
  Transmission Date: 20141212
  Serious: Yes (Other)
  Sender: FDA-Public Use
  Company Number: GB-ROCHE-1400014

PATIENT
  Age: 76 Year
  Sex: Female

DRUGS (3)
  1. TOCILIZUMAB [Suspect]
     Indication: RHEUMATOID ARTHRITIS
     Route: 065
  2. METHYLPREDNISOLONE [Concomitant]
     Route: 030
  3. PREDNISOLONE [Concomitant]
     Route: 065

REACTIONS (1)
  - Glomerulonephritis [Unknown]
